FAERS Safety Report 8584116-4 (Version None)
Quarter: 2012Q3

REPORT INFORMATION
  Report Type: 
  Country: None (occurrence: None)
  Receive Date: 20120810
  Receipt Date: 20120802
  Transmission Date: 20120928
  Serious: No
  Sender: FDA-Public Use
  Company Number: US-009507513-1208USA001575

PATIENT

DRUGS (1)
  1. JANUVIA [Suspect]

REACTIONS (1)
  - MUSCULAR WEAKNESS [None]
